FAERS Safety Report 16487762 (Version 1)
Quarter: 2019Q2

REPORT INFORMATION
  Report Type: Spontaneous
  Country: US (occurrence: US)
  Receive Date: 20190627
  Receipt Date: 20190627
  Transmission Date: 20190711
  Serious: No
  Sender: FDA-Public Use
  Company Number: US-009507513-1812USA001380

PATIENT
  Age: 36 Year
  Sex: Female

DRUGS (9)
  1. CABERGOLINE. [Concomitant]
     Active Substance: CABERGOLINE
  2. LETRAZURIL [Concomitant]
  3. METFORMIN [Concomitant]
     Active Substance: METFORMIN HYDROCHLORIDE
  4. FOLLISTIM AQ [Suspect]
     Active Substance: FOLLITROPIN
     Indication: INFERTILITY
     Dosage: STRENGTH 300, PER MD PROTOCOL, DAILY
     Route: 058
     Dates: start: 20181127
  5. NOVAREL [Concomitant]
     Active Substance: CHORIOGONADOTROPIN ALFA
  6. CETROTIDE [Concomitant]
     Active Substance: CETRORELIX ACETATE
  7. MENOPUR [Concomitant]
     Active Substance: FOLLITROPIN\LUTEINIZING HORMONE
  8. LEUPROLIDE [Concomitant]
     Active Substance: LEUPROLIDE
  9. AZITHROMYCIN ANHYDROUS. [Concomitant]
     Active Substance: AZITHROMYCIN ANHYDROUS

REACTIONS (1)
  - Headache [Unknown]

NARRATIVE: CASE EVENT DATE: 20181130
